FAERS Safety Report 9882784 (Version 2)
Quarter: 2014Q1

REPORT INFORMATION
  Report Type: Spontaneous
  Country: PT (occurrence: PT)
  Receive Date: 20140207
  Receipt Date: 20140221
  Transmission Date: 20141002
  Serious: Yes (Other)
  Sender: FDA-Public Use
  Company Number: PT-KOWA-2014S1000082

PATIENT
  Age: 58 Year
  Sex: Male

DRUGS (1)
  1. ALIPZA [Suspect]
     Indication: HYPERCHOLESTEROLAEMIA
     Dates: start: 201211, end: 201305

REACTIONS (1)
  - Saliva altered [Recovering/Resolving]
